FAERS Safety Report 20626692 (Version 3)
Quarter: 2022Q3

REPORT INFORMATION
  Report Type: Report from Study
  Country: JP (occurrence: JP)
  Receive Date: 20220323
  Receipt Date: 20220908
  Transmission Date: 20221026
  Serious: Yes (Other)
  Sender: FDA-Public Use
  Company Number: JP-UCBSA-2022016579

PATIENT
  Age: 66 Year
  Sex: Male

DRUGS (5)
  1. CIMZIA [Suspect]
     Active Substance: CERTOLIZUMAB PEGOL
     Indication: Psoriatic arthropathy
     Dosage: 400 MILLIGRAM, EV 2 WEEKS(QOW)
     Route: 058
     Dates: start: 20210219
  2. MYSER [Concomitant]
     Indication: Product used for unknown indication
     Dosage: UNK
     Route: 062
     Dates: start: 20181105, end: 20210305
  3. BETAMETHASONE BUTYRATE PROPIONATE\MAXACALCITOL [Concomitant]
     Active Substance: BETAMETHASONE BUTYRATE PROPIONATE\MAXACALCITOL
     Indication: Product used for unknown indication
     Route: 062
     Dates: start: 20210310
  4. METHOTREXATE [Concomitant]
     Active Substance: METHOTREXATE
     Indication: Product used for unknown indication
     Route: 048
     Dates: start: 20150514
  5. PREDONINE [Concomitant]
     Active Substance: PREDNISOLONE
     Indication: Product used for unknown indication
     Route: 048
     Dates: start: 20210315

REACTIONS (1)
  - Pneumonia [Recovering/Resolving]

NARRATIVE: CASE EVENT DATE: 20220210
